FAERS Safety Report 5722372-8 (Version None)
Quarter: 2008Q2

REPORT INFORMATION
  Report Type: 
  Country: None (occurrence: None)
  Receive Date: 20080429
  Receipt Date: 20070807
  Transmission Date: 20081010
  Serious: No
  Sender: FDA-Public Use
  Company Number: US-ASTRAZENECA-2007UW19129

PATIENT
  Age: 58 Year
  Sex: Male
  Weight: 74.8 kg

DRUGS (3)
  1. NEXIUM [Suspect]
     Indication: GASTROOESOPHAGEAL REFLUX DISEASE
     Route: 048
  2. ZETIA [Concomitant]
  3. CRESTOR [Concomitant]
     Route: 048

REACTIONS (1)
  - SKIN IRRITATION [None]
